FAERS Safety Report 8355567-8 (Version None)
Quarter: 2012Q2

REPORT INFORMATION
  Report Type: 
  Country: None (occurrence: None)
  Receive Date: 20120513
  Receipt Date: 20120502
  Transmission Date: 20120825
  Serious: Yes (Other)
  Sender: FDA-Public Use
  Company Number: US-ELI_LILLY_AND_COMPANY-US201205001186

PATIENT
  Sex: Male

DRUGS (11)
  1. CYCLOBENZAPRINE [Concomitant]
     Dosage: 10 MG, PRN
  2. HYDROCODONE BITARTRATE [Concomitant]
     Dosage: UNK, PRN
  3. FORTEO [Suspect]
     Indication: OSTEOPOROSIS
     Dosage: 20 UG, QD
     Dates: start: 20110801
  4. CITALOPRAM [Concomitant]
     Dosage: 20 MG, QD
  5. ASCORBIC ACID [Concomitant]
     Dosage: UNK, BID
  6. VITAMIN D [Concomitant]
     Dosage: 50000 IU, WEEKLY (1/W)
  7. TRAMADOL                           /00599201/ [Concomitant]
     Dosage: UNK, BID
  8. GABAPENTIN [Concomitant]
     Dosage: 30 MG, TID
  9. VITAMIN D [Concomitant]
     Dosage: UNK, BID
  10. STOOL SOFTENER [Concomitant]
     Dosage: UNK, PRN
  11. BACTRIM [Concomitant]
     Dosage: UNK, BID

REACTIONS (1)
  - SKIN CANCER [None]
